FAERS Safety Report 7545041-0 (Version None)
Quarter: 2011Q2

REPORT INFORMATION
  Report Type: 
  Country: None (occurrence: None)
  Receive Date: 20110614
  Receipt Date: 20110531
  Transmission Date: 20111010
  Serious: Yes (Hospitalization, Other)
  Sender: FDA-Public Use
  Company Number: US-BAYER-201026635NA

PATIENT
  Age: 27 Year
  Sex: Female
  Weight: 61 kg

DRUGS (2)
  1. YAZ [Suspect]
     Indication: PRODUCT USED FOR UNKNOWN INDICATION
     Dosage: UNK
     Route: 048
     Dates: start: 20080701, end: 20091012
  2. NSAID'S [Concomitant]
     Indication: PAIN

REACTIONS (11)
  - CHEST PAIN [None]
  - ABDOMINAL PAIN UPPER [None]
  - ATELECTASIS [None]
  - PAIN IN EXTREMITY [None]
  - GASTRIC DILATATION [None]
  - PULMONARY EMBOLISM [None]
  - HAEMOPTYSIS [None]
  - ABDOMINAL PAIN [None]
  - DEEP VEIN THROMBOSIS [None]
  - LOBAR PNEUMONIA [None]
  - PLEURAL EFFUSION [None]
